FAERS Safety Report 15680926 (Version 1)
Quarter: 2018Q4

REPORT INFORMATION
  Report Type: Spontaneous
  Country: US (occurrence: US)
  Receive Date: 20181120
  Receipt Date: 20181120
  Transmission Date: 20190205
  Serious: No
  Sender: FDA-Public Use
  Company Number: None

PATIENT
  Age: 58 Year
  Sex: Female
  Weight: 51.75 kg

DRUGS (1)
  1. BUPROPION HYDROCHLORIDE EXTENDED-RELEASE TABLES (XL) 150 [Suspect]
     Active Substance: BUPROPION HYDROCHLORIDE
     Indication: DEPRESSION
     Dosage: ?          QUANTITY:2 TABLET(S);?
     Route: 048
     Dates: start: 20181028, end: 20181120

REACTIONS (6)
  - Headache [None]
  - Disturbance in attention [None]
  - Agitation [None]
  - Abdominal pain [None]
  - Abdominal discomfort [None]
  - Insomnia [None]

NARRATIVE: CASE EVENT DATE: 20181104
